FAERS Safety Report 10139222 (Version 1)
Quarter: 2014Q2

REPORT INFORMATION
  Report Type: Spontaneous
  Country: US (occurrence: US)
  Receive Date: 20140429
  Receipt Date: 20140429
  Transmission Date: 20141212
  Serious: Yes (Other)
  Sender: FDA-Public Use
  Company Number: 2014SP001265

PATIENT
  Age: 56 Year
  Sex: Female

DRUGS (3)
  1. LATUDA [Suspect]
     Indication: DEPRESSION
     Route: 048
     Dates: start: 201403, end: 20140406
  2. OLANZAPINE [Concomitant]
  3. ABILIFY [Concomitant]

REACTIONS (3)
  - Transient ischaemic attack [Unknown]
  - Hemiplegia [Unknown]
  - Dehydration [Unknown]
